FAERS Safety Report 8574283-0 (Version None)
Quarter: 2012Q3

REPORT INFORMATION
  Report Type: 
  Country: None (occurrence: None)
  Receive Date: 20120806
  Receipt Date: 20120425
  Transmission Date: 20120928
  Serious: Yes (Hospitalization, Other)
  Sender: FDA-Public Use
  Company Number: JP-GILEAD-2011-0040215

PATIENT
  Age: 54 Year
  Sex: Male

DRUGS (3)
  1. EMTRIVA [Suspect]
     Indication: HIV INFECTION
  2. EFAVIRENZ [Suspect]
     Indication: HIV INFECTION
  3. VIREAD [Suspect]
     Indication: HIV INFECTION

REACTIONS (2)
  - ANAEMIA [None]
  - IMMUNE RECONSTITUTION SYNDROME [None]
